FAERS Safety Report 23799723 (Version 1)
Quarter: 2024Q2

REPORT INFORMATION
  Report Type: Spontaneous
  Country: US (occurrence: None)
  Receive Date: 20240429
  Receipt Date: 20240429
  Transmission Date: 20240716
  Serious: No
  Sender: FDA-Public Use
  Company Number: None

PATIENT
  Age: 2 Day
  Sex: Male
  Weight: 3.3 kg

DRUGS (1)
  1. LIDOCAINE [Suspect]
     Active Substance: LIDOCAINE
     Dosage: 1 UNK  AS NEEDED TOPICAL?
     Route: 061
     Dates: start: 20240426

REACTIONS (1)
  - Penile swelling [None]

NARRATIVE: CASE EVENT DATE: 20240426
